FAERS Safety Report 17763855 (Version 2)
Quarter: 2020Q3

REPORT INFORMATION
  Report Type: Spontaneous
  Country: US (occurrence: US)
  Receive Date: 20200510
  Receipt Date: 20200703
  Transmission Date: 20201102
  Serious: No
  Sender: FDA-Public Use
  Company Number: US-009507513-2004USA008567

PATIENT
  Age: 48 Year

DRUGS (1)
  1. JANUMET XR [Suspect]
     Active Substance: METFORMIN HYDROCHLORIDE\SITAGLIPTIN PHOSPHATE
     Dosage: 50MG/1000MG TWICE A DAY
     Route: 048
     Dates: start: 202004

REACTIONS (3)
  - Product physical issue [Unknown]
  - Inappropriate schedule of product administration [Unknown]
  - Poor quality product administered [Unknown]

NARRATIVE: CASE EVENT DATE: 202004
